FAERS Safety Report 5655479-4 (Version None)
Quarter: 2008Q1

REPORT INFORMATION
  Report Type: 
  Country: None (occurrence: None)
  Receive Date: 20080307
  Receipt Date: 20080227
  Transmission Date: 20080703
  Serious: Yes (Other)
  Sender: FDA-Public Use
  Company Number: US-ELI_LILLY_AND_COMPANY-US200802007032

PATIENT
  Sex: Female
  Weight: 56.689 kg

DRUGS (6)
  1. BYETTA [Suspect]
     Dosage: 5 UG, 2/D
     Route: 058
     Dates: start: 20050101, end: 20050101
  2. BYETTA [Suspect]
     Dosage: 10 UG, 2/D
     Route: 058
     Dates: start: 20050101
  3. GLUCOPHAGE [Concomitant]
     Dosage: UNK, 2/D
  4. ASPIRIN [Concomitant]
     Dosage: UNK, UNKNOWN
  5. LISINOPRIL [Concomitant]
     Dosage: UNK, DAILY (1/D)
  6. VITAMINS [Concomitant]
     Dosage: UNK, UNKNOWN

REACTIONS (5)
  - NASOPHARYNGITIS [None]
  - SINUSITIS [None]
  - THROAT IRRITATION [None]
  - UTERINE PROLAPSE [None]
  - WEIGHT DECREASED [None]
